FAERS Safety Report 5155119-7 (Version None)
Quarter: 2006Q4

REPORT INFORMATION
  Report Type: 
  Country: None (occurrence: None)
  Receive Date: 20061121
  Receipt Date: 20060824
  Transmission Date: 20070319
  Serious: Yes (Other)
  Sender: FDA-Public Use
  Company Number: MX-ELI_LILLY_AND_COMPANY-MX200608005171

PATIENT
  Age: 60 Year
  Sex: Female
  Weight: 56.689 kg

DRUGS (3)
  1. FORTEO [Suspect]
     Indication: OSTEOPOROSIS
     Dosage: 20 UG, UNK
     Route: 058
     Dates: start: 20060811, end: 20061001
  2. DOLO-NEUROBION TABLET [Concomitant]
     Dosage: UNK, DAILY (1/D)
  3. TYLENOL /USA/ [Concomitant]

REACTIONS (6)
  - ABDOMINAL PAIN UPPER [None]
  - FALL [None]
  - HEADACHE [None]
  - NECK INJURY [None]
  - PRURITUS [None]
  - SPINAL OPERATION [None]
